FAERS Safety Report 11239029 (Version 3)
Quarter: 2015Q3

REPORT INFORMATION
  Report Type: Spontaneous
  Country: US (occurrence: US)
  Receive Date: 20150706
  Receipt Date: 20150807
  Transmission Date: 20151125
  Serious: Yes (Hospitalization)
  Sender: FDA-Public Use
  Company Number: US-UNITED THERAPEUTICS-UNT-2015-007866

PATIENT
  Age: 55 Year
  Sex: Female
  Weight: 98.87 kg

DRUGS (4)
  1. TORASEMIDE [Concomitant]
     Active Substance: TORSEMIDE
     Indication: PRODUCT USED FOR UNKNOWN INDICATION
     Dosage: 80 MG, BID
  2. REMODULIN [Suspect]
     Active Substance: TREPROSTINIL
     Dosage: 0.126 ?G/KG, CONTINUING
     Route: 041
  3. REVATIO [Concomitant]
     Active Substance: SILDENAFIL CITRATE
     Indication: PRODUCT USED FOR UNKNOWN INDICATION
  4. REMODULIN [Suspect]
     Active Substance: TREPROSTINIL
     Indication: PULMONARY HYPERTENSION
     Dosage: 0.126 ?G/KG, CONTINUING
     Route: 041
     Dates: start: 20130519

REACTIONS (3)
  - Syncope [Unknown]
  - Fluid retention [Unknown]
  - Dyspnoea [Unknown]

NARRATIVE: CASE EVENT DATE: 20150626
